FAERS Safety Report 14242609 (Version 1)
Quarter: 2017Q4

REPORT INFORMATION
  Report Type: Spontaneous
  Country: US (occurrence: US)
  Receive Date: 20171201
  Receipt Date: 20171201
  Transmission Date: 20180321
  Serious: Yes (Hospitalization)
  Sender: FDA-Public Use
  Company Number: US-TARO PHARMACEUTICALS USA.,INC-2017SUN00398

PATIENT
  Age: 40 Year
  Sex: Male

DRUGS (2)
  1. WARFARIN [Suspect]
     Active Substance: WARFARIN
     Indication: RENAL ARTERY DISSECTION
     Dosage: UNK
     Route: 065
  2. WARFARIN [Suspect]
     Active Substance: WARFARIN
     Indication: RENAL INFARCT

REACTIONS (3)
  - Treatment failure [Recovered/Resolved]
  - Renal infarct [Recovered/Resolved]
  - Disease progression [Recovered/Resolved]
